FAERS Safety Report 23799955 (Version 1)
Quarter: 2024Q2

REPORT INFORMATION
  Report Type: Spontaneous
  Country: US (occurrence: US)
  Receive Date: 20240430
  Receipt Date: 20240430
  Transmission Date: 20240716
  Serious: No
  Sender: FDA-Public Use
  Company Number: US-Calliditas-2024CAL00645

PATIENT
  Age: 59 Year
  Sex: Female
  Weight: 53 kg

DRUGS (1)
  1. TARPEYO [Suspect]
     Active Substance: BUDESONIDE
     Indication: IgA nephropathy
     Dosage: 16MG (4MG CAPSULES) ONCE DAILY
     Route: 048
     Dates: start: 20231205

REACTIONS (9)
  - Swelling face [Unknown]
  - Weight decreased [Unknown]
  - Dysphonia [Unknown]
  - Throat clearing [Unknown]
  - Insomnia [Unknown]
  - Tension [Unknown]
  - Irritability [Unknown]
  - Emotional disorder [Unknown]
  - Headache [Unknown]
